FAERS Safety Report 6076735-4 (Version None)
Quarter: 2009Q1

REPORT INFORMATION
  Report Type: 
  Country: None (occurrence: None)
  Receive Date: 20090213
  Receipt Date: 20090209
  Transmission Date: 20090719
  Serious: Yes (Hospitalization)
  Sender: FDA-Public Use
  Company Number: CA-ASTRAZENECA-2009UW00999

PATIENT
  Age: 13874 Day
  Sex: Male

DRUGS (5)
  1. SEROQUEL XR [Suspect]
     Indication: SCHIZOPHRENIA
     Dosage: 800 MG
     Route: 048
     Dates: start: 20081209, end: 20090108
  2. SEROQUEL [Concomitant]
     Indication: PSYCHOTIC DISORDER
     Dosage: 600 MG
     Route: 048
     Dates: start: 20080603, end: 20081208
  3. SEROQUEL [Concomitant]
     Dosage: 25 MG
     Route: 048
     Dates: start: 20080603, end: 20081208
  4. SEROQUEL [Concomitant]
     Dosage: 300 MG
     Route: 048
     Dates: start: 20081224, end: 20081224
  5. MULTI-VITAMIN [Concomitant]
     Route: 048

REACTIONS (1)
  - PSYCHOTIC DISORDER [None]
